FAERS Safety Report 13357765 (Version 1)
Quarter: 2017Q1

REPORT INFORMATION
  Report Type: Spontaneous
  Country: US (occurrence: US)
  Receive Date: 20170322
  Receipt Date: 20170322
  Transmission Date: 20170429
  Serious: No
  Sender: FDA-Public Use
  Company Number: US-ZYDUS-013104

PATIENT
  Age: 75 Year
  Sex: Female

DRUGS (1)
  1. TELMISARTAN. [Suspect]
     Active Substance: TELMISARTAN
     Indication: HYPERTENSION
     Dates: start: 201611

REACTIONS (1)
  - Nasal oedema [Not Recovered/Not Resolved]

NARRATIVE: CASE EVENT DATE: 201611
